FAERS Safety Report 11424639 (Version 2)
Quarter: 2015Q3

REPORT INFORMATION
  Report Type: Spontaneous
  Country: PL (occurrence: PL)
  Receive Date: 20150827
  Receipt Date: 20150901
  Transmission Date: 20151125
  Serious: Yes (Death, Hospitalization)
  Sender: FDA-Public Use
  Company Number: PHHY2015PL102211

PATIENT
  Age: 33 Year
  Sex: Male

DRUGS (1)
  1. CICLOSPORIN [Suspect]
     Active Substance: CYCLOSPORINE
     Indication: BONE MARROW FAILURE
     Route: 065

REACTIONS (11)
  - Multi-organ failure [Fatal]
  - Ischaemia [Unknown]
  - Granulocytosis [Unknown]
  - Anaemia [Unknown]
  - Aspergillus infection [Fatal]
  - Thrombocytopenia [Unknown]
  - Sepsis [Recovering/Resolving]
  - Acute kidney injury [Unknown]
  - Salmonellosis [Unknown]
  - Fungal endocarditis [Fatal]
  - Embolism arterial [Unknown]
